FAERS Safety Report 6800935-6 (Version None)
Quarter: 2010Q2

REPORT INFORMATION
  Report Type: 
  Country: None (occurrence: None)
  Receive Date: 20100629
  Receipt Date: 20100618
  Transmission Date: 20101027
  Serious: Yes (Other)
  Sender: FDA-Public Use
  Company Number: PHHY2010BR40188

PATIENT
  Age: 78 Year
  Sex: Female

DRUGS (1)
  1. FORASEQ [Suspect]
     Indication: LUNG DISORDER
     Dosage: BID
     Dates: end: 20100617

REACTIONS (5)
  - BLOOD CHOLESTEROL INCREASED [None]
  - COUGH [None]
  - DIABETES MELLITUS [None]
  - FATIGUE [None]
  - INCREASED UPPER AIRWAY SECRETION [None]
